FAERS Safety Report 10467319 (Version 1)
Quarter: 2014Q3

REPORT INFORMATION
  Report Type: Spontaneous
  Country: US (occurrence: US)
  Receive Date: 20140922
  Receipt Date: 20140922
  Transmission Date: 20150326
  Serious: No
  Sender: FDA-Public Use
  Company Number: US-009507513-1409USA010116

PATIENT

DRUGS (1)
  1. ZETIA [Suspect]
     Active Substance: EZETIMIBE
     Indication: BLOOD CHOLESTEROL INCREASED
     Dosage: 1 TABLET ONCE DAILY
     Route: 048
     Dates: start: 2014, end: 2014

REACTIONS (2)
  - Tenderness [Unknown]
  - Myalgia [Unknown]

NARRATIVE: CASE EVENT DATE: 2014
